FAERS Safety Report 20151498 (Version 1)
Quarter: 2021Q4

REPORT INFORMATION
  Report Type: Spontaneous
  Country: CA (occurrence: CA)
  Receive Date: 20211206
  Receipt Date: 20211206
  Transmission Date: 20220303
  Serious: Yes (Other)
  Sender: FDA-Public Use
  Company Number: CA-TEVA-2021-CA-1983601

PATIENT
  Age: 35 Year
  Sex: Female

DRUGS (4)
  1. AZATHIOPRINE [Suspect]
     Active Substance: AZATHIOPRINE
     Indication: Systemic lupus erythematosus
     Route: 065
  2. PREDNISONE [Suspect]
     Active Substance: PREDNISONE
     Indication: Systemic lupus erythematosus
     Dosage: 15 MILLIGRAM DAILY;
     Route: 065
  3. HYDROXYCHLOROQUINE SULFATE [Suspect]
     Active Substance: HYDROXYCHLOROQUINE SULFATE
     Indication: Systemic lupus erythematosus
     Route: 065
  4. HYDROXYCHLOROQUINE SULFATE [Suspect]
     Active Substance: HYDROXYCHLOROQUINE SULFATE
     Dosage: 200 MILLIGRAM DAILY;
     Route: 065

REACTIONS (7)
  - Chorioretinal disorder [Recovered/Resolved]
  - Chorioretinopathy [Recovered/Resolved]
  - Exposure during pregnancy [Recovered/Resolved]
  - Macular degeneration [Recovered/Resolved]
  - Metamorphopsia [Recovered/Resolved]
  - Subretinal fluid [Recovered/Resolved]
  - Visual impairment [Recovered/Resolved]
